FAERS Safety Report 5646039-X (Version None)
Quarter: 2008Q1

REPORT INFORMATION
  Report Type: 
  Country: None (occurrence: None)
  Receive Date: 20080229
  Receipt Date: 20080219
  Transmission Date: 20080703
  Serious: Yes (Other)
  Sender: FDA-Public Use
  Company Number: US-PFIZER INC-2008016118

PATIENT
  Sex: Female
  Weight: 90.909 kg

DRUGS (3)
  1. DILANTIN [Suspect]
     Indication: CONVULSION
  2. DILANTIN [Suspect]
     Indication: CONVULSION
     Dates: start: 20071201
  3. SYNTHROID [Concomitant]

REACTIONS (12)
  - ACTIVITIES OF DAILY LIVING IMPAIRED [None]
  - ANTICONVULSANT DRUG LEVEL BELOW THERAPEUTIC [None]
  - CONVULSION [None]
  - EYE DISORDER [None]
  - FEELING ABNORMAL [None]
  - FOOT FRACTURE [None]
  - HEADACHE [None]
  - NIGHTMARE [None]
  - PERSONALITY CHANGE [None]
  - PHARYNGOLARYNGEAL PAIN [None]
  - SOMNOLENCE [None]
  - WEIGHT INCREASED [None]
